FAERS Safety Report 24688674 (Version 3)
Quarter: 2025Q1

REPORT INFORMATION
  Report Type: Spontaneous
  Country: PL (occurrence: PL)
  Receive Date: 20241203
  Receipt Date: 20250227
  Transmission Date: 20250408
  Serious: Yes (Life-Threatening, Hospitalization, Other)
  Sender: BRISTOL-MYERS SQUIBB COMPANY
  Company Number: PL-BRISTOL-MYERS SQUIBB COMPANY-2024-184141

PATIENT
  Age: 72 Year
  Sex: Male

DRUGS (9)
  1. NIVOLUMAB [Suspect]
     Active Substance: NIVOLUMAB
     Indication: Non-small cell lung cancer
     Dates: start: 20240119
  2. NIVOLUMAB [Suspect]
     Active Substance: NIVOLUMAB
     Dates: start: 20240209, end: 20240301
  3. NIVOLUMAB [Suspect]
     Active Substance: NIVOLUMAB
     Dates: start: 20240301, end: 202404
  4. IPILIMUMAB [Suspect]
     Active Substance: IPILIMUMAB
     Indication: Non-small cell lung cancer
     Dates: start: 20240119, end: 20240301
  5. IPILIMUMAB [Suspect]
     Active Substance: IPILIMUMAB
     Dates: start: 20240301, end: 202404
  6. PEMETREXED [Concomitant]
     Active Substance: PEMETREXED
     Indication: Non-small cell lung cancer
     Dates: start: 20240119
  7. PEMETREXED [Concomitant]
     Active Substance: PEMETREXED
     Dates: start: 20240209
  8. CISPLATIN [Concomitant]
     Active Substance: CISPLATIN
     Indication: Non-small cell lung cancer
     Dates: start: 20240119
  9. CISPLATIN [Concomitant]
     Active Substance: CISPLATIN
     Dates: start: 20240209

REACTIONS (7)
  - Dyspnoea [Unknown]
  - Diplopia [Unknown]
  - Myocarditis [Recovered/Resolved]
  - Hepatotoxicity [Unknown]
  - Asthenia [Unknown]
  - Anal incontinence [Unknown]
  - Urinary incontinence [Unknown]

NARRATIVE: CASE EVENT DATE: 20240101
